FAERS Safety Report 13499027 (Version 3)
Quarter: 2017Q3

REPORT INFORMATION
  Report Type: Spontaneous
  Country: US (occurrence: US)
  Receive Date: 20170501
  Receipt Date: 20170724
  Transmission Date: 20171127
  Serious: Yes (Death, Hospitalization, Other)
  Sender: FDA-Public Use
  Company Number: US-009507513-1704USA012522

PATIENT
  Age: 74 Year
  Sex: Male
  Weight: 110.2 kg

DRUGS (1)
  1. KEYTRUDA [Suspect]
     Active Substance: PEMBROLIZUMAB
     Indication: MALIGNANT MELANOMA
     Dosage: UNK
     Dates: start: 20170203

REACTIONS (12)
  - Death [Fatal]
  - Seizure [Unknown]
  - Asthenia [Unknown]
  - Platelet count decreased [Unknown]
  - Pyrexia [Unknown]
  - Tongue erythema [Unknown]
  - Rash [Unknown]
  - Pruritus [Unknown]
  - Tremor [Unknown]
  - Fall [Unknown]
  - Headache [Unknown]
  - Polyuria [Unknown]

NARRATIVE: CASE EVENT DATE: 201702
